FAERS Safety Report 13347168 (Version 1)
Quarter: 2017Q1

REPORT INFORMATION
  Report Type: Spontaneous
  Country: DE (occurrence: DE)
  Receive Date: 20170317
  Receipt Date: 20170317
  Transmission Date: 20170428
  Serious: Yes (Hospitalization)
  Sender: FDA-Public Use
  Company Number: PHHY2017DE037652

PATIENT
  Age: 67 Year
  Sex: Male

DRUGS (1)
  1. STALEVO [Suspect]
     Active Substance: CARBIDOPA\ENTACAPONE\LEVODOPA
     Indication: PARKINSON^S DISEASE
     Dosage: UNK
     Route: 050
     Dates: start: 201701

REACTIONS (2)
  - Wrong technique in product usage process [Unknown]
  - Productive cough [Unknown]

NARRATIVE: CASE EVENT DATE: 201701
